FAERS Safety Report 16241842 (Version 1)
Quarter: 2019Q2

REPORT INFORMATION
  Report Type: Spontaneous
  Country: US (occurrence: US)
  Receive Date: 20190426
  Receipt Date: 20190426
  Transmission Date: 20190711
  Serious: No
  Sender: FDA-Public Use
  Company Number: US-HETERO CORPORATE-HET2019US00406

PATIENT
  Age: 58 Year
  Sex: Female
  Weight: 81.63 kg

DRUGS (1)
  1. PANTOPRAZOLE [Suspect]
     Active Substance: PANTOPRAZOLE
     Indication: GASTROOESOPHAGEAL REFLUX DISEASE
     Dosage: 40 MG (ONE TABLET BY MOUTH)
     Route: 065

REACTIONS (14)
  - Headache [Recovered/Resolved]
  - Diarrhoea [Recovering/Resolving]
  - Neuropathy peripheral [Unknown]
  - Pain in extremity [Recovering/Resolving]
  - Arthralgia [Unknown]
  - Adverse event [Unknown]
  - Myalgia [Unknown]
  - Malaise [Recovered/Resolved]
  - Ulcer [Unknown]
  - Gastritis [Recovering/Resolving]
  - Pain [Unknown]
  - Flatulence [Unknown]
  - Paraesthesia [Unknown]
  - Lymphadenopathy [Recovered/Resolved]

NARRATIVE: CASE EVENT DATE: 20190306
